FAERS Safety Report 16733172 (Version 1)
Quarter: 2019Q3

REPORT INFORMATION
  Report Type: Spontaneous
  Country: CN (occurrence: CN)
  Receive Date: 20190823
  Receipt Date: 20190823
  Transmission Date: 20191005
  Serious: Yes (Other)
  Sender: FDA-Public Use
  Company Number: CN-ROCHE-2381952

PATIENT
  Age: 81 Year
  Sex: Male

DRUGS (8)
  1. MABTHERA [Suspect]
     Active Substance: RITUXIMAB
     Indication: NON-HODGKIN^S LYMPHOMA
     Route: 041
     Dates: start: 20190419
  2. METOPROLOL. [Concomitant]
     Active Substance: METOPROLOL
     Indication: NON-HODGKIN^S LYMPHOMA
     Route: 048
     Dates: start: 20190514
  3. RIVAROXABAN [Concomitant]
     Active Substance: RIVAROXABAN
     Indication: NON-HODGKIN^S LYMPHOMA
     Route: 065
     Dates: start: 20190514
  4. IBRUTINIB [Concomitant]
     Active Substance: IBRUTINIB
     Indication: NON-HODGKIN^S LYMPHOMA
     Route: 048
     Dates: start: 20190419
  5. METOPROLOL. [Concomitant]
     Active Substance: METOPROLOL
     Indication: DIFFUSE LARGE B-CELL LYMPHOMA
  6. MABTHERA [Suspect]
     Active Substance: RITUXIMAB
     Indication: DIFFUSE LARGE B-CELL LYMPHOMA
  7. IBRUTINIB [Concomitant]
     Active Substance: IBRUTINIB
     Indication: DIFFUSE LARGE B-CELL LYMPHOMA
  8. RIVAROXABAN [Concomitant]
     Active Substance: RIVAROXABAN
     Indication: DIFFUSE LARGE B-CELL LYMPHOMA

REACTIONS (8)
  - Muscular weakness [Recovering/Resolving]
  - Aortic valve sclerosis [Unknown]
  - Arrhythmia [Not Recovered/Not Resolved]
  - Atrial fibrillation [Unknown]
  - Aortic valve incompetence [Unknown]
  - Mitral valve incompetence [Unknown]
  - Extrasystoles [Not Recovered/Not Resolved]
  - Tricuspid valve incompetence [Unknown]
